FAERS Safety Report 7535504-6 (Version None)
Quarter: 2011Q2

REPORT INFORMATION
  Report Type: 
  Country: None (occurrence: None)
  Receive Date: 20110609
  Receipt Date: 20100921
  Transmission Date: 20111010
  Serious: Yes (Hospitalization, Other)
  Sender: FDA-Public Use
  Company Number: US-BAYER-200941645NA

PATIENT
  Age: 28 Year
  Sex: Female
  Weight: 90 kg

DRUGS (16)
  1. LANSOPRAZOLE [Concomitant]
     Indication: GASTROOESOPHAGEAL REFLUX DISEASE
     Dates: start: 20060101, end: 20090101
  2. NSAID'S [Concomitant]
     Dates: start: 19920101
  3. LORAZEPAM [Concomitant]
     Indication: TACHYCARDIA
     Dosage: 0.5 MG (DAILY DOSE), PRN,
  4. PHENERGAN HCL [Concomitant]
     Indication: NAUSEA
  5. LANSOPRAZOLE [Concomitant]
  6. ETHINYL ESTRADIOL [Concomitant]
     Indication: POLYCYSTIC OVARIES
  7. ORTHO-CEPT [Concomitant]
     Indication: OVARIAN CYST
     Dates: start: 19950101, end: 20060101
  8. ALBUTEROL SULFATE AUTOHALER [Concomitant]
     Route: 055
     Dates: start: 20050101, end: 20100101
  9. PREVACID [Concomitant]
     Indication: GASTROOESOPHAGEAL REFLUX DISEASE
     Dosage: 30 MG (DAILY DOSE), ,
     Dates: start: 20020101
  10. PREVACID [Concomitant]
  11. ETHINYL ESTRADIOL [Concomitant]
     Indication: MIGRAINE
     Dates: start: 20090101
  12. PHENERGAN HCL [Concomitant]
     Indication: VOMITING
     Dates: start: 20030101, end: 20090101
  13. YAZ [Suspect]
     Indication: ORAL CONTRACEPTION
     Dosage: 1 DF (DAILY DOSE), QD, ORAL
     Route: 048
     Dates: start: 20061001, end: 20090501
  14. RELPAX [Concomitant]
     Indication: MIGRAINE
     Dates: start: 20060101
  15. COMBIVENT [Concomitant]
     Dates: start: 20030101
  16. TOPROL-XL [Concomitant]
     Dosage: 50 MG (DAILY DOSE), ,
     Dates: start: 20070101, end: 20090101

REACTIONS (12)
  - NAUSEA [None]
  - GASTROENTERITIS [None]
  - PYREXIA [None]
  - ABDOMINAL PAIN UPPER [None]
  - VOMITING [None]
  - DIARRHOEA [None]
  - CHEST PAIN [None]
  - POSTOPERATIVE WOUND INFECTION [None]
  - BILIARY DYSKINESIA [None]
  - CHOLELITHIASIS [None]
  - BACK PAIN [None]
  - SINUS TACHYCARDIA [None]
